FAERS Safety Report 15665459 (Version 1)
Quarter: 2018Q4

REPORT INFORMATION
  Report Type: Spontaneous
  Country: JP (occurrence: JP)
  Receive Date: 20181128
  Receipt Date: 20181128
  Transmission Date: 20190205
  Serious: Yes (Life-Threatening)
  Sender: FDA-Public Use
  Company Number: JP-PFIZER INC-2018483205

PATIENT
  Age: 83 Year
  Sex: Male

DRUGS (19)
  1. FEBURIC [Concomitant]
     Active Substance: FEBUXOSTAT
     Dosage: 20 MG, 1X/DAY
  2. MAGNESIUM OXIDE. [Concomitant]
     Active Substance: MAGNESIUM OXIDE
     Dosage: 330 MG, 3X/DAY
  3. POTASSIUM IODIDE. [Concomitant]
     Active Substance: POTASSIUM IODIDE
     Dosage: 50 MG, 1X/DAY
  4. TRAMAL [Concomitant]
     Active Substance: TRAMADOL
     Dosage: 25 MG, 4X/DAY
  5. LOXONIN [Concomitant]
     Active Substance: LOXOPROFEN SODIUM
     Route: 048
  6. CINAL [Concomitant]
     Active Substance: ASCORBIC ACID\CALCIUM PANTOTHENATE
     Dosage: 3 DF, DAILY
  7. BAYASPIRIN [Concomitant]
     Active Substance: ASPIRIN
     Dosage: 100 MG, 1X/DAY
  8. REZALTAS [Concomitant]
     Active Substance: AZELNIDIPINE\OLMESARTAN MEDOXOMIL
     Dosage: 1 DF, 1X/DAY
  9. PROCYLIN [Concomitant]
     Active Substance: BERAPROST SODIUM
     Dosage: 20 MG, 3X/DAY
  10. CARDENALIN [Concomitant]
     Active Substance: DOXAZOSIN MESYLATE
     Dosage: 1 MG, 1X/DAY
  11. AVOLVE [Concomitant]
     Active Substance: DUTASTERIDE
     Dosage: 0.5 MG, 1X/DAY
  12. TAKEPRON [Concomitant]
     Active Substance: LANSOPRAZOLE
     Dosage: 15 MG, 2X/DAY
  13. ALESION [Concomitant]
     Active Substance: EPINASTINE HYDROCHLORIDE
     Dosage: 20 MG, 1X/DAY
  14. HERBAL NOS [Concomitant]
     Active Substance: HERBALS
     Dosage: 3 DF, DAILY
  15. LIVALO [Concomitant]
     Active Substance: PITAVASTATIN CALCIUM
     Dosage: 2 MG, 1X/DAY
  16. FLAVITAN [Concomitant]
     Active Substance: FLAVIN ADENINE DINUCLEOTIDE
     Dosage: 30 MG, DAILY (5MG X 6)
  17. LYRICA [Suspect]
     Active Substance: PREGABALIN
     Indication: SPINAL COLUMN STENOSIS
     Dosage: UNK
     Route: 048
  18. LASIX [Concomitant]
     Active Substance: FUROSEMIDE
     Dosage: 1 MG, 1X/DAY
  19. PYDOXAL [Concomitant]
     Active Substance: PYRIDOXAL
     Dosage: 30 MG, 2X/DAY

REACTIONS (3)
  - Blood creatine phosphokinase increased [Recovering/Resolving]
  - Asthenia [Recovering/Resolving]
  - Decreased appetite [Recovering/Resolving]

NARRATIVE: CASE EVENT DATE: 201809
